FAERS Safety Report 23900780 (Version 1)
Quarter: 2024Q2

REPORT INFORMATION
  Report Type: Spontaneous
  Country: US (occurrence: None)
  Receive Date: 20240526
  Receipt Date: 20240526
  Transmission Date: 20240716
  Serious: No
  Sender: FDA-Public Use
  Company Number: US-ROCHE-3473248

PATIENT
  Age: 38 Year
  Sex: Female

DRUGS (1)
  1. OCREVUS [Suspect]
     Active Substance: OCRELIZUMAB
     Indication: Multiple sclerosis
     Dosage: FIRST HALF DOSE GIVEN ON 20/NOV/2023 AND SECOND HALF DOSE GIVEN ON 6/DEC/2023
     Route: 065

REACTIONS (4)
  - Infusion related reaction [Unknown]
  - Headache [Unknown]
  - Dyspnoea [Unknown]
  - Flushing [Unknown]
